FAERS Safety Report 13349552 (Version 1)
Quarter: 2017Q1

REPORT INFORMATION
  Report Type: Spontaneous
  Country: US (occurrence: US)
  Receive Date: 20170317
  Receipt Date: 20170317
  Transmission Date: 20170428
  Serious: Yes (Hospitalization, Other)
  Sender: FDA-Public Use
  Company Number: None

PATIENT
  Age: 54 Year
  Sex: Female
  Weight: 153.7 kg

DRUGS (1)
  1. ALBUMIN [Suspect]
     Active Substance: ALBUMIN HUMAN
     Indication: FLUID OVERLOAD
     Route: 042

REACTIONS (4)
  - Hypotension [None]
  - Tachypnoea [None]
  - Rash [None]
  - Pruritus [None]

NARRATIVE: CASE EVENT DATE: 20170316
